FAERS Safety Report 9557932 (Version 3)
Quarter: 2014Q1

REPORT INFORMATION
  Report Type: Report from Study
  Country: US (occurrence: US)
  Receive Date: 20130926
  Receipt Date: 20140321
  Transmission Date: 20141002
  Serious: Yes (Other)
  Sender: FDA-Public Use
  Company Number: US-PURDUE-USA-2013-0106650

PATIENT
  Age: 51 Year
  Sex: Male
  Weight: 122.9 kg

DRUGS (3)
  1. OXY CR TAB [Suspect]
     Indication: PAIN
     Dosage: 40 MG, 2 TABLETS AM AND 1 TABLET PM
     Route: 048
     Dates: start: 20090202
  2. OXY CR TAB [Suspect]
     Indication: ARTHRITIS
     Dosage: UNK
     Route: 048
     Dates: start: 20110706
  3. OXY CR TAB [Suspect]
     Indication: ARTHRALGIA
     Dosage: 40 MG, 2 TABLETS AM AND 1 TABLET PM
     Route: 048
     Dates: start: 20140207

REACTIONS (3)
  - Arthropathy [Unknown]
  - Tibia fracture [Not Recovered/Not Resolved]
  - Impaired healing [Unknown]
